FAERS Safety Report 4834680-3 (Version None)
Quarter: 2005Q4

REPORT INFORMATION
  Report Type: 
  Country: None (occurrence: None)
  Receive Date: 20051122
  Receipt Date: 20050620
  Transmission Date: 20060501
  Serious: No
  Sender: FDA-Public Use
  Company Number: US-BRISTOL-MYERS SQUIBB COMPANY-13009774

PATIENT
  Age: 44 Year
  Sex: Male
  Weight: 86 kg

DRUGS (1)
  1. PRAVACHOL [Suspect]
     Indication: BLOOD CHOLESTEROL INCREASED

REACTIONS (10)
  - ACNE [None]
  - ALLERGIC COUGH [None]
  - CHROMATURIA [None]
  - DYSURIA [None]
  - FATIGUE [None]
  - INSOMNIA [None]
  - LETHARGY [None]
  - PAIN [None]
  - SKIN DISCOLOURATION [None]
  - STREPTOCOCCAL INFECTION [None]
